FAERS Safety Report 25357303 (Version 1)
Quarter: 2025Q2

REPORT INFORMATION
  Report Type: Spontaneous
  Country: PL (occurrence: PL)
  Receive Date: 20250526
  Receipt Date: 20250526
  Transmission Date: 20250717
  Serious: Yes (Other)
  Sender: AMGEN
  Company Number: PL-AMGEN-POLSP2025099634

PATIENT
  Age: 67 Year
  Sex: Female

DRUGS (6)
  1. VECTIBIX [Suspect]
     Active Substance: PANITUMUMAB
     Indication: Colorectal cancer metastatic
     Route: 065
     Dates: start: 20200122
  2. VECTIBIX [Suspect]
     Active Substance: PANITUMUMAB
     Route: 065
  3. VECTIBIX [Suspect]
     Active Substance: PANITUMUMAB
     Route: 065
  4. OXALIPLATIN [Suspect]
     Active Substance: OXALIPLATIN
     Indication: Colorectal cancer metastatic
     Route: 065
     Dates: start: 20200122
  5. LEUCOVORIN [Suspect]
     Active Substance: LEUCOVORIN\LEUCOVORIN CALCIUM
     Indication: Colorectal cancer metastatic
     Route: 065
     Dates: start: 20200122
  6. FLUOROURACIL [Suspect]
     Active Substance: FLUOROURACIL
     Indication: Colorectal cancer metastatic
     Route: 065
     Dates: start: 20200122

REACTIONS (2)
  - Hepatotoxicity [Recovering/Resolving]
  - Skin toxicity [Not Recovered/Not Resolved]

NARRATIVE: CASE EVENT DATE: 20210101
